FAERS Safety Report 20670272 (Version 2)
Quarter: 2022Q3

REPORT INFORMATION
  Report Type: Spontaneous
  Country: BR (occurrence: BR)
  Receive Date: 20220404
  Receipt Date: 20220707
  Transmission Date: 20221027
  Serious: Yes (Other)
  Sender: FDA-Public Use
  Company Number: BR-GLAXOSMITHKLINE-BR2022AMR057825

PATIENT

DRUGS (1)
  1. FLUTICASONE PROPIONATE [Suspect]
     Active Substance: FLUTICASONE PROPIONATE
     Indication: Asthma
     Dosage: UNK SPRAY 250 MCG - 60 DOSES

REACTIONS (2)
  - Asthmatic crisis [Unknown]
  - Product use issue [Unknown]

NARRATIVE: CASE EVENT DATE: 20220330
